FAERS Safety Report 5256855-4 (Version None)
Quarter: 2007Q1

REPORT INFORMATION
  Report Type: 
  Country: None (occurrence: None)
  Receive Date: 20070306
  Receipt Date: 20070220
  Transmission Date: 20070707
  Serious: Yes (Hospitalization)
  Sender: FDA-Public Use
  Company Number: US-ELI_LILLY_AND_COMPANY-US200702004561

PATIENT
  Age: 51 Year
  Sex: Female

DRUGS (15)
  1. FORTEO [Suspect]
     Indication: OSTEOPOROSIS
     Dosage: UNK D/F, UNKNOWN
     Dates: start: 20060401
  2. IMURAN [Concomitant]
  3. PREDNISONE [Concomitant]
     Dosage: 10 MG, DAILY (1/D)
  4. NEORAL [Concomitant]
  5. BACTRIM [Concomitant]
  6. PRILOSEC [Concomitant]
  7. COLACE [Concomitant]
  8. CALCIUM [Concomitant]
  9. MAGNESIUM [Concomitant]
  10. IRON [Concomitant]
  11. PRENATAL VITAMINS                  /01549301/ [Concomitant]
  12. ZOLOFT [Concomitant]
  13. CLONOPIN [Concomitant]
  14. GEMFIBROZIL [Concomitant]
  15. FOSAMAX [Concomitant]

REACTIONS (5)
  - ASTHENIA [None]
  - BACK PAIN [None]
  - CHOLECYSTECTOMY [None]
  - LUNG TRANSPLANT [None]
  - MUSCLE SPASMS [None]
